FAERS Safety Report 9018852 (Version 1)
Quarter: 2013Q1

REPORT INFORMATION
  Report Type: Spontaneous
  Country: ZA (occurrence: ZA)
  Receive Date: 20130118
  Receipt Date: 20130118
  Transmission Date: 20140127
  Serious: Yes (Life-Threatening, Other)
  Sender: FDA-Public Use
  Company Number: ZA-ASTRAZENECA-2013SE03083

PATIENT
  Age: 37 Year
  Sex: Male

DRUGS (3)
  1. SEROQUEL XR [Suspect]
     Route: 048
     Dates: end: 201301
  2. EPILIM [Suspect]
     Route: 048
     Dates: end: 201301
  3. CILIFT [Suspect]
     Route: 048
     Dates: end: 201301

REACTIONS (6)
  - Suicide attempt [Recovered/Resolved with Sequelae]
  - Physical assault [Unknown]
  - Renal injury [Not Recovered/Not Resolved]
  - Aggression [Not Recovered/Not Resolved]
  - Treatment noncompliance [Unknown]
  - Drug dose omission [Unknown]
